FAERS Safety Report 21684062 (Version 1)
Quarter: 2022Q4

REPORT INFORMATION
  Report Type: Spontaneous
  Country: GB (occurrence: GB)
  Receive Date: 20221205
  Receipt Date: 20221205
  Transmission Date: 20230113
  Serious: Yes (Other)
  Sender: FDA-Public Use
  Company Number: GB-002147023-NVSC2022GB265115

PATIENT

DRUGS (6)
  1. RUXOLITINIB [Suspect]
     Active Substance: RUXOLITINIB
     Indication: Myelofibrosis
     Dosage: 20 MG, BID
     Route: 065
  2. RUXOLITINIB [Suspect]
     Active Substance: RUXOLITINIB
     Dosage: 15 MG, BID
     Route: 065
  3. RUXOLITINIB [Suspect]
     Active Substance: RUXOLITINIB
     Dosage: 10 MG, BID
     Route: 065
  4. EPREX [Concomitant]
     Active Substance: ERYTHROPOIETIN
     Indication: Product used for unknown indication
     Dosage: UNK, QW (10000 UNITS)
     Route: 065
  5. EPREX [Concomitant]
     Active Substance: ERYTHROPOIETIN
     Dosage: UNK, QW (30000 UNITS)
     Route: 065
  6. EPREX [Concomitant]
     Active Substance: ERYTHROPOIETIN
     Dosage: UNK, QW (40000 UNITS)
     Route: 065

REACTIONS (20)
  - Anaemia [Unknown]
  - Basal cell carcinoma [Unknown]
  - Second primary malignancy [Unknown]
  - Bone pain [Unknown]
  - Depression [Unknown]
  - Myelofibrosis [Unknown]
  - Malignant neoplasm progression [Unknown]
  - Early satiety [Unknown]
  - Fatigue [Unknown]
  - Haemoglobin abnormal [Unknown]
  - Decreased activity [Unknown]
  - Abdominal pain upper [Unknown]
  - Lethargy [Unknown]
  - Disturbance in attention [Unknown]
  - Night sweats [Recovered/Resolved]
  - Platelet count abnormal [Unknown]
  - Pruritus [Unknown]
  - Skin lesion [Unknown]
  - Splenomegaly [Unknown]
  - White blood cell count abnormal [Unknown]
